FAERS Safety Report 8958617 (Version 1)
Quarter: 2012Q4

REPORT INFORMATION
  Report Type: Spontaneous
  Country: US (occurrence: None)
  Receive Date: 20121206
  Receipt Date: 20121206
  Transmission Date: 20130627
  Serious: No
  Sender: FDA-Public Use
  Company Number: None

PATIENT
  Age: 39 Year
  Sex: Female
  Weight: 122.47 kg

DRUGS (1)
  1. TIZANIDINE [Suspect]
     Indication: MUSCLE RELAXANT
     Dosage: 2 pills a day at bedtime Daily po
     Route: 048
     Dates: start: 20091110, end: 20121202

REACTIONS (6)
  - Abdominal pain [None]
  - Nausea [None]
  - Nightmare [None]
  - Hyperhidrosis [None]
  - Hallucination [None]
  - Confusional state [None]
